FAERS Safety Report 26210093 (Version 1)
Quarter: 2025Q4

REPORT INFORMATION
  Report Type: Spontaneous
  Country: EU (occurrence: EU)
  Receive Date: 20251229
  Receipt Date: 20251229
  Transmission Date: 20260117
  Serious: Yes (Hospitalization)
  Sender: MYLAN
  Company Number: EU-MYLANLABS-2025M1109113

PATIENT
  Age: 63 Year
  Sex: Male

DRUGS (5)
  1. MESALAMINE [Suspect]
     Active Substance: MESALAMINE
     Indication: Colitis ulcerative
     Dosage: 3 GRAM, QD
     Route: 061
  2. INFLIXIMAB [Suspect]
     Active Substance: INFLIXIMAB
     Indication: Colitis ulcerative
     Dosage: 5 MILLIGRAM/KILOGRAM, THREE INDUCTION DOSES AND ONE MAINTENANCE DOSE FOR PAST 3 MONTHS
  3. PREDNISONE [Concomitant]
     Active Substance: PREDNISONE
     Indication: Colitis ulcerative
     Dosage: UP TO 50 MG/DAY
  4. PREDNISONE [Concomitant]
     Active Substance: PREDNISONE
     Dosage: UNK, THERAPY RESTARTED (DOSE WAS TAPERED OVER THREE MONTHS)
  5. BECLOMETHASONE DIPROPIONATE [Concomitant]
     Active Substance: BECLOMETHASONE DIPROPIONATE
     Indication: Colitis ulcerative
     Dosage: UNK

REACTIONS (1)
  - Interstitial lung disease [Recovering/Resolving]
